FAERS Safety Report 5797393-X (Version None)
Quarter: 2008Q3

REPORT INFORMATION
  Report Type: 
  Country: None (occurrence: None)
  Receive Date: 20080701
  Receipt Date: 20080521
  Transmission Date: 20090109
  Serious: No
  Sender: FDA-Public Use
  Company Number: US-BOEHRINGER INGELHEIM GMBH, GERMANY-2008-BP-07982BP

PATIENT
  Age: 58 Year
  Sex: Male

DRUGS (3)
  1. FLOMAX [Suspect]
     Indication: RENAL STONE REMOVAL
     Route: 048
     Dates: start: 20080429, end: 20080509
  2. VITAMINS [Concomitant]
  3. ALLOPRAZALAM [Concomitant]
     Indication: ANXIETY

REACTIONS (6)
  - ABNORMAL FAECES [None]
  - BLADDER PAIN [None]
  - GASTROINTESTINAL PAIN [None]
  - SKIN EXFOLIATION [None]
  - URETHRAL PAIN [None]
  - URINE ABNORMALITY [None]
